FAERS Safety Report 8624417-4 (Version None)
Quarter: 2012Q3

REPORT INFORMATION
  Report Type: 
  Country: None (occurrence: None)
  Receive Date: 20120827
  Receipt Date: 20120820
  Transmission Date: 20120928
  Serious: Yes (Other)
  Sender: FDA-Public Use
  Company Number: US-CELGENEUS-163-20785-12082195

PATIENT
  Sex: Male

DRUGS (22)
  1. THALOMID [Suspect]
     Indication: MULTIPLE MYELOMA
     Dosage: 100 MILLIGRAM
     Route: 048
     Dates: start: 20120201
  2. CLARITHROMYCIN [Concomitant]
     Route: 048
     Dates: start: 20120226
  3. CLARITHROMYCIN [Concomitant]
     Route: 048
     Dates: start: 20120618
  4. ALLOPURINOL [Concomitant]
     Route: 048
     Dates: start: 20110512
  5. CYMBALTA [Concomitant]
     Route: 048
  6. ZETIA [Concomitant]
     Route: 048
     Dates: start: 20120531
  7. FINASTERIDE [Concomitant]
     Route: 048
     Dates: start: 20110223
  8. FINASTERIDE [Concomitant]
     Route: 048
     Dates: start: 20120802
  9. TAMSULOSIN HCL [Concomitant]
     Route: 048
     Dates: start: 20120731
  10. CRESTOR [Concomitant]
     Route: 048
     Dates: start: 20120629
  11. CYTOXAN [Concomitant]
     Route: 048
  12. TRAZODONE HYDROCHLORIDE [Concomitant]
     Route: 048
  13. ACYCLOVIR [Concomitant]
     Route: 048
     Dates: start: 20120618
  14. THALOMID [Suspect]
     Dosage: 50 MILLIGRAM
     Route: 048
     Dates: start: 20120725
  15. CITALOPRAM HYDROBROMIDE [Concomitant]
     Route: 048
     Dates: start: 20120716
  16. DICLOFENAC SODIUM [Concomitant]
     Route: 048
     Dates: start: 20120705
  17. ZOMETA [Concomitant]
     Route: 065
  18. TAMSULOSIN HCL [Concomitant]
     Route: 048
     Dates: start: 20110223
  19. LOVASTATIN [Concomitant]
     Route: 048
     Dates: start: 20110223
  20. VITAMIN D [Concomitant]
     Route: 048
  21. VELCADE [Concomitant]
     Route: 065
  22. TRAZODONE HYDROCHLORIDE [Concomitant]
     Route: 048
     Dates: start: 20120604

REACTIONS (1)
  - LIVER DISORDER [None]
